FAERS Safety Report 7834171-1 (Version None)
Quarter: 2011Q4

REPORT INFORMATION
  Report Type: 
  Country: None (occurrence: None)
  Receive Date: 20111024
  Receipt Date: 20111013
  Transmission Date: 20120403
  Serious: Yes (Hospitalization)
  Sender: FDA-Public Use
  Company Number: PHHY2011AU83783

PATIENT
  Sex: Male

DRUGS (14)
  1. PANTOPRAZOLE [Concomitant]
     Dosage: 40 MG, NOCTE
  2. CLOZARIL [Suspect]
     Indication: SCHIZOPHRENIA
     Dosage: 300 MG, UNK
  3. PERINDOPRIL ERBUMINE [Concomitant]
     Dosage: 5 MG, MANE
  4. ASPIRIN [Concomitant]
     Dosage: 100 MG, MANE
  5. PIOGLITAZONE [Concomitant]
     Dosage: 45 MG, MANE
  6. CALCIUM CARBONATE W/CHOLECALCIFEROL/SODIUM [Concomitant]
  7. COLOXYL WITH SENNA [Concomitant]
     Dosage: 1-2 TABS BD PRN
  8. AMLODIPINE [Concomitant]
     Dosage: 10 MG, DAILY
  9. ATORVASTATIN [Concomitant]
     Dosage: 20 MG, NOCTE
  10. ACETAMINOPHEN [Concomitant]
     Dosage: 1 G, QID
  11. METFORMIN HCL [Concomitant]
     Dosage: 1 G, TID
  12. SERTRALINE HYDROCHLORIDE [Concomitant]
     Dosage: 200 MG, MANE
  13. GLICLAZIDE [Concomitant]
     Dosage: 90 MG, MANE DAILY
  14. CLOZARIL [Suspect]
     Dosage: 450 MG
     Dates: start: 20110901

REACTIONS (5)
  - INTENTIONAL SELF-INJURY [None]
  - SUICIDAL IDEATION [None]
  - SCHIZOPHRENIA [None]
  - ANTIPSYCHOTIC DRUG LEVEL BELOW THERAPEUTIC [None]
  - STAB WOUND [None]
